FAERS Safety Report 8177614-9 (Version None)
Quarter: 2012Q1

REPORT INFORMATION
  Report Type: 
  Country: None (occurrence: None)
  Receive Date: 20120301
  Receipt Date: 20120220
  Transmission Date: 20120608
  Serious: Yes (Hospitalization, Other)
  Sender: FDA-Public Use
  Company Number: PHHY2010DE89336

PATIENT
  Sex: Female
  Weight: 66 kg

DRUGS (14)
  1. CETIRIZINE HCL [Concomitant]
     Dates: start: 20091109
  2. TASIGNA [Suspect]
     Dosage: 800 MG,
     Route: 048
     Dates: start: 20100830
  3. GASTROSIL [Concomitant]
     Dates: start: 20091210
  4. AGGRENOX [Concomitant]
     Dosage: 200 MG,
     Dates: start: 20100625
  5. RAMIPRIL [Concomitant]
     Dates: start: 20100625
  6. TASIGNA [Suspect]
     Dosage: 600 MG,
     Route: 048
     Dates: start: 20100124
  7. PANTOPRAZOLE [Concomitant]
     Dates: start: 20091210
  8. SIMVASTATIN [Concomitant]
     Indication: HYPERLIPIDAEMIA
     Dosage: 20 MG,
     Dates: start: 20100317
  9. RAMIPRIL [Concomitant]
     Dosage: 12.5 MG,
  10. TASIGNA [Suspect]
     Indication: CHRONIC MYELOID LEUKAEMIA
     Dosage: 800 MG, DAILY
     Route: 048
     Dates: start: 20090924
  11. IBUPROFEN [Concomitant]
     Dates: start: 20100331
  12. TASIGNA [Suspect]
     Dosage: 400 MG,
     Route: 048
     Dates: start: 20100301
  13. VALPROIC ACID [Concomitant]
     Indication: EPILEPSY
     Dosage: 500 MG, BID
     Route: 048
     Dates: start: 19800101
  14. TRAMADOL HCL [Concomitant]
     Dates: start: 20100310

REACTIONS (16)
  - LACUNAR INFARCTION [None]
  - ARTERIAL OCCLUSIVE DISEASE [None]
  - ABDOMINAL PAIN UPPER [None]
  - DRY SKIN [None]
  - BONE PAIN [None]
  - INTERVERTEBRAL DISC PROTRUSION [None]
  - FATIGUE [None]
  - RASH [None]
  - NECK PAIN [None]
  - INTERMITTENT CLAUDICATION [None]
  - CHEST PAIN [None]
  - CORONARY ARTERY STENOSIS [None]
  - COORDINATION ABNORMAL [None]
  - DYSPEPSIA [None]
  - MUSCULAR WEAKNESS [None]
  - PAIN [None]
